FAERS Safety Report 7320878-1 (Version None)
Quarter: 2011Q1

REPORT INFORMATION
  Report Type: 
  Country: None (occurrence: None)
  Receive Date: 20110228
  Receipt Date: 20110214
  Transmission Date: 20110831
  Serious: Yes (Death, Hospitalization)
  Sender: FDA-Public Use
  Company Number: IT-MERCK-1101ITA00059

PATIENT
  Age: 73 Year
  Sex: Female

DRUGS (14)
  1. VALSARTAN [Concomitant]
     Route: 048
  2. VERAPAMIL HYDROCHLORIDE [Concomitant]
     Route: 048
  3. NYSTATIN [Concomitant]
     Route: 065
     Dates: start: 20101015, end: 20101112
  4. PRIMAXIN [Suspect]
     Indication: PRODUCTIVE COUGH
     Route: 041
     Dates: start: 20101030, end: 20101109
  5. METILDIGOXIN [Concomitant]
     Route: 065
  6. ACENOCOUMAROL [Concomitant]
     Route: 048
  7. LEVOFLOXACIN [Suspect]
     Indication: NEUTROPHILIA
     Route: 041
     Dates: start: 20101023, end: 20101109
  8. AMOXICILLIN AND CLAVULANATE POTASSIUM [Suspect]
     Indication: OROPHARYNGEAL PAIN
     Route: 048
     Dates: start: 20101011, end: 20101015
  9. OMEPRAZOLE [Concomitant]
     Route: 048
  10. DOPAMINE HYDROCHLORIDE [Concomitant]
     Route: 065
     Dates: start: 20101022
  11. CEFTAZIDIME [Suspect]
     Indication: PRODUCTIVE COUGH
     Route: 041
     Dates: start: 20101021, end: 20101030
  12. ALUMINUM HYDROXIDE AND MAGNESIUM HYDROXIDE [Concomitant]
     Route: 048
  13. FUROSEMIDE [Concomitant]
     Route: 065
  14. METHYLPREDNISOLONE [Concomitant]
     Route: 065

REACTIONS (5)
  - ASTHENIA [None]
  - CLOSTRIDIUM TEST POSITIVE [None]
  - DIARRHOEA [None]
  - PYREXIA [None]
  - ABDOMINAL PAIN [None]
